FAERS Safety Report 14694976 (Version 1)
Quarter: 2018Q1

REPORT INFORMATION
  Report Type: Report from Study
  Country: GB (occurrence: GB)
  Receive Date: 20180329
  Receipt Date: 20180329
  Transmission Date: 20180509
  Serious: Yes (Other)
  Sender: FDA-Public Use
  Company Number: GB-BIOGEN-2018BI00548110

PATIENT
  Sex: Female

DRUGS (2)
  1. CODEINE [Concomitant]
     Active Substance: CODEINE
     Indication: MULTIPLE SCLEROSIS
     Route: 065
  2. TYSABRI [Suspect]
     Active Substance: NATALIZUMAB
     Indication: MULTIPLE SCLEROSIS
     Route: 042

REACTIONS (18)
  - Stress [Unknown]
  - Dental caries [Unknown]
  - Weight increased [Unknown]
  - Laboratory test abnormal [Unknown]
  - Fatigue [Unknown]
  - Vein disorder [Unknown]
  - Needle track marks [Unknown]
  - Administration site bruise [Unknown]
  - Tooth injury [Unknown]
  - Multiple sclerosis relapse [Unknown]
  - Vitamin D decreased [Unknown]
  - Sepsis [Unknown]
  - Gingival disorder [Unknown]
  - Weight decreased [Unknown]
  - Libido increased [Unknown]
  - Multiple sclerosis [Unknown]
  - Gastric disorder [Unknown]
  - Limb injury [Unknown]
